FAERS Safety Report 6084307-0 (Version None)
Quarter: 2009Q1

REPORT INFORMATION
  Report Type: 
  Country: None (occurrence: None)
  Receive Date: 20090217
  Receipt Date: 20090205
  Transmission Date: 20090719
  Serious: Yes (Life-Threatening, Other)
  Sender: FDA-Public Use
  Company Number: ADE2009-0437

PATIENT
  Age: 15 Year
  Sex: Male

DRUGS (2)
  1. FLUOXETINE HYDROCHLORIDE [Suspect]
     Indication: DEPRESSION
     Dates: start: 20071117
  2. CITALOPRAM HYDROBROMIDE [Concomitant]

REACTIONS (4)
  - ANTISOCIAL BEHAVIOUR [None]
  - HOMICIDE [None]
  - PERSONALITY CHANGE [None]
  - PHYSICAL ASSAULT [None]
